FAERS Safety Report 16066306 (Version 1)
Quarter: 2019Q1

REPORT INFORMATION
  Report Type: Spontaneous
  Country: US (occurrence: US)
  Receive Date: 20190313
  Receipt Date: 20190313
  Transmission Date: 20190418
  Serious: No
  Sender: FDA-Public Use
  Company Number: US-MYLANLABS-2019M1018098

PATIENT
  Sex: Male
  Weight: 127 kg

DRUGS (1)
  1. EMSAM [Suspect]
     Active Substance: SELEGILINE
     Indication: DEPRESSION
     Dosage: 9 MILLIGRAM, QD

REACTIONS (2)
  - Product adhesion issue [Unknown]
  - Wrong technique in product usage process [Recovered/Resolved]
